FAERS Safety Report 5153890-1 (Version None)
Quarter: 2006Q4

REPORT INFORMATION
  Report Type: 
  Country: None (occurrence: None)
  Receive Date: 20061120
  Receipt Date: 20061108
  Transmission Date: 20070319
  Serious: Yes (Other)
  Sender: FDA-Public Use
  Company Number: PHBS2006BE17557

PATIENT
  Age: 64 Year
  Sex: Male

DRUGS (2)
  1. TAXOTERE [Concomitant]
  2. ZOMETA [Suspect]
     Dates: start: 20041201

REACTIONS (4)
  - ACTINOMYCOSIS [None]
  - OSTEONECROSIS [None]
  - TOOTH EXTRACTION [None]
  - WOUND DEBRIDEMENT [None]
